FAERS Safety Report 20920652 (Version 6)
Quarter: 2023Q2

REPORT INFORMATION
  Report Type: Report from Study
  Country: FR (occurrence: FR)
  Receive Date: 20220606
  Receipt Date: 20230410
  Transmission Date: 20230721
  Serious: Yes (Hospitalization, Other)
  Sender: FDA-Public Use
  Company Number: FR-BRISTOL-MYERS SQUIBB COMPANY-2022-049897

PATIENT
  Age: 69 Year
  Sex: Male
  Weight: 71 kg

DRUGS (4)
  1. NIVOLUMAB [Suspect]
     Active Substance: NIVOLUMAB
     Indication: Metastatic malignant melanoma
     Dosage: ACTUAL DOSE WAS 240 MG?3 MG/KG Q3W (FIRST 4 INJECTIONS)?LAST DOSE RECEIVED ON 03-MAY-2022
     Route: 042
     Dates: start: 20220412, end: 20220503
  2. IPILIMUMAB [Suspect]
     Active Substance: IPILIMUMAB
     Indication: Metastatic malignant melanoma
     Dosage: LAST DOSE RECEIVED ON 03-MAY-2022
     Route: 042
     Dates: start: 20220412, end: 20220503
  3. BINIMETINIB [Suspect]
     Active Substance: BINIMETINIB
     Indication: Metastatic malignant melanoma
     Dosage: 0.5 DAY
     Route: 048
     Dates: start: 20220111, end: 20220408
  4. ENCORAFENIB [Suspect]
     Active Substance: ENCORAFENIB
     Indication: Metastatic malignant melanoma
     Route: 048
     Dates: start: 20220111, end: 20220408

REACTIONS (1)
  - Hepatic cytolysis [Recovered/Resolved]

NARRATIVE: CASE EVENT DATE: 20220527
